FAERS Safety Report 9768812 (Version 2)
Quarter: 2014Q1

REPORT INFORMATION
  Report Type: Spontaneous
  Country: US (occurrence: US)
  Receive Date: 20131218
  Receipt Date: 20140115
  Transmission Date: 20141002
  Serious: Yes (Hospitalization)
  Sender: FDA-Public Use
  Company Number: US-B.I. PHARMACEUTICALS,INC./RIDGEFIELD-2013-BI-42499BP

PATIENT
  Sex: Female

DRUGS (2)
  1. COMBIVENT [Suspect]
     Indication: EMPHYSEMA
     Dosage: DOSE PER APPLICATION: 20 MCG / 100 MCG;
     Route: 055
     Dates: end: 20131209
  2. COMBIVENT [Suspect]
     Indication: CHRONIC OBSTRUCTIVE PULMONARY DISEASE

REACTIONS (6)
  - Chronic obstructive pulmonary disease [Unknown]
  - Hypoxia [Unknown]
  - Dyspnoea [Unknown]
  - Pulmonary congestion [Unknown]
  - Cough [Unknown]
  - Drug ineffective [Unknown]
